FAERS Safety Report 7650258-0 (Version None)
Quarter: 2011Q3

REPORT INFORMATION
  Report Type: 
  Country: None (occurrence: None)
  Receive Date: 20110727
  Receipt Date: 20110711
  Transmission Date: 20111222
  Serious: Yes (Hospitalization)
  Sender: FDA-Public Use
  Company Number: 2011MA008646

PATIENT
  Age: 76 Year
  Sex: Male

DRUGS (2)
  1. FERROUS SUL TAB [Suspect]
     Indication: PRODUCT USED FOR UNKNOWN INDICATION
     Dosage: 325 MG;QD;PO
     Route: 048
  2. FERRIC GLUCONATE [Concomitant]

REACTIONS (3)
  - SERUM FERRITIN INCREASED [None]
  - IRON OVERLOAD [None]
  - YERSINIA BACTERAEMIA [None]
